FAERS Safety Report 9498012 (Version 1)
Quarter: 2013Q3

REPORT INFORMATION
  Report Type: Spontaneous
  Country: TW (occurrence: None)
  Receive Date: 20130830
  Receipt Date: 20130830
  Transmission Date: 20140515
  Serious: Yes (Hospitalization)
  Sender: FDA-Public Use
  Company Number: IPC201308-000338

PATIENT
  Age: 60 Year
  Sex: Male

DRUGS (7)
  1. ATENOLOL [Suspect]
     Indication: OEDEMA PERIPHERAL
  2. FUROSEMIDE [Suspect]
     Indication: OEDEMA PERIPHERAL
  3. SPIRONOLACTONE [Suspect]
  4. VALSARTAN [Suspect]
  5. ATORVASTATIN [Suspect]
  6. CLONIDINE [Suspect]
  7. PREDNISOLONE [Suspect]

REACTIONS (3)
  - Pancreatitis acute [None]
  - Blood pressure [None]
  - Renal impairment [None]
